FAERS Safety Report 11270909 (Version 1)
Quarter: 2015Q3

REPORT INFORMATION
  Report Type: Spontaneous
  Country: FR (occurrence: FR)
  Receive Date: 20150714
  Receipt Date: 20150714
  Transmission Date: 20151125
  Serious: Yes (Death, Hospitalization)
  Sender: FDA-Public Use
  Company Number: FR-FRESENIUS KABI-FK201503289

PATIENT
  Age: 65 Year
  Sex: Female

DRUGS (3)
  1. CISPLATINE [Concomitant]
     Active Substance: CISPLATIN
     Indication: LUNG CANCER METASTATIC
     Dates: start: 20141123, end: 20141213
  2. NAVELBINE [Concomitant]
     Active Substance: VINORELBINE TARTRATE
     Indication: LUNG CANCER METASTATIC
     Dates: start: 20141123, end: 20141213
  3. PACLITAXEL 6MG/ML CONCENTRATE FOR SOLUTION FOR INFUSION [Suspect]
     Active Substance: PACLITAXEL
     Indication: LUNG CANCER METASTATIC
     Route: 042
     Dates: start: 20150112, end: 20150223

REACTIONS (1)
  - Interstitial lung disease [Fatal]

NARRATIVE: CASE EVENT DATE: 201503
